FAERS Safety Report 9157205 (Version 1)
Quarter: 2013Q1

REPORT INFORMATION
  Report Type: Spontaneous
  Country: US (occurrence: None)
  Receive Date: 20130204
  Receipt Date: 20130204
  Transmission Date: 20140127
  Serious: Yes (Hospitalization)
  Sender: FDA-Public Use
  Company Number: THQ2013A00605

PATIENT
  Age: 66 Year
  Sex: Female
  Weight: 33.11 kg

DRUGS (4)
  1. PREVACID (LANSOPRAZOLE) [Suspect]
     Indication: GASTRIC DISORDER
     Dosage: PER ORAL, UNKNOWN
     Dates: start: 2005
  2. PROTONIX [Suspect]
  3. TYLENOL (PARACETAMOL) [Concomitant]
  4. ACETYLSALICYLIC ACID [Concomitant]

REACTIONS (10)
  - Migraine [None]
  - Headache [None]
  - Arthritis [None]
  - Flatulence [None]
  - Pain [None]
  - Decreased appetite [None]
  - Palpitations [None]
  - Myocardial infarction [None]
  - Nausea [None]
  - Drug ineffective [None]
